FAERS Safety Report 7539176-6 (Version None)
Quarter: 2011Q2

REPORT INFORMATION
  Report Type: 
  Country: None (occurrence: None)
  Receive Date: 20110610
  Receipt Date: 20040426
  Transmission Date: 20111010
  Serious: Yes (Death)
  Sender: FDA-Public Use
  Company Number: PHFR2004GB01305

PATIENT
  Sex: Male

DRUGS (2)
  1. DIHYDROCODEINE BITARTRATE INJ [Suspect]
     Dosage: 'MULTIPLE DOSES'
  2. CLOZARIL [Suspect]
     Dosage: 500 MG PER DAY
     Route: 048
     Dates: start: 19980715

REACTIONS (2)
  - CARDIOVASCULAR DISORDER [None]
  - RESPIRATORY FAILURE [None]
